FAERS Safety Report 6826810-9 (Version None)
Quarter: 2010Q3

REPORT INFORMATION
  Report Type: 
  Country: None (occurrence: None)
  Receive Date: 20100709
  Receipt Date: 20100611
  Transmission Date: 20110219
  Serious: Yes (Other)
  Sender: FDA-Public Use
  Company Number: US-ROCHE-683914

PATIENT
  Sex: Male

DRUGS (2)
  1. PEGASYS [Suspect]
     Indication: HEPATITIS C
     Dosage: FORM:PRE-FILLED SYRINGES
     Route: 058
     Dates: start: 20091009, end: 20100401
  2. RIBAVIRIN [Suspect]
     Indication: HEPATITIS C
     Dosage: DIVIDED DOSES
     Route: 048
     Dates: start: 20091009, end: 20100401

REACTIONS (11)
  - AMNESIA [None]
  - ASTHENIA [None]
  - BALANCE DISORDER [None]
  - CEREBROVASCULAR ACCIDENT [None]
  - COORDINATION ABNORMAL [None]
  - FATIGUE [None]
  - HEMIPLEGIA [None]
  - HYPOAESTHESIA [None]
  - HYPOTHYROIDISM [None]
  - LIBIDO DECREASED [None]
  - SLUGGISHNESS [None]
